FAERS Safety Report 21614532 (Version 1)
Quarter: 2022Q4

REPORT INFORMATION
  Report Type: Report from Study
  Country: JP (occurrence: JP)
  Receive Date: 20221118
  Receipt Date: 20221118
  Transmission Date: 20230112
  Serious: Yes (Hospitalization, Other)
  Sender: FDA-Public Use
  Company Number: JP-CHUGAI-2022045343AA

PATIENT
  Age: 84 Year
  Sex: Female
  Weight: 52 kg

DRUGS (7)
  1. ATEZOLIZUMAB [Suspect]
     Active Substance: ATEZOLIZUMAB
     Indication: Lung neoplasm malignant
     Dosage: 1200 MILLIGRAM
     Route: 041
     Dates: start: 20210611
  2. CARBOPLATIN [Concomitant]
     Active Substance: CARBOPLATIN
     Indication: Lung neoplasm malignant
     Dosage: 335 MILLIGRAM
     Route: 041
     Dates: start: 20210611, end: 20210826
  3. ABRAXANE [Concomitant]
     Active Substance: PACLITAXEL
     Indication: Lung neoplasm malignant
     Dosage: 150 MILLIGRAM, ONCE/WEEK
     Route: 041
     Dates: start: 20210611, end: 20210902
  4. AMLODIPINE BESYLATE [Concomitant]
     Active Substance: AMLODIPINE BESYLATE
     Dosage: 2.5 MILLIGRAM, QD
     Route: 065
  5. METGLUCO [Concomitant]
     Active Substance: METFORMIN HYDROCHLORIDE
     Dosage: 1000 MILLIGRAM, QD
     Route: 065
  6. LEXAPRO [Concomitant]
     Active Substance: ESCITALOPRAM OXALATE
     Dosage: 10 MILLIGRAM, QD
     Route: 065
  7. EZETIMIBE [Concomitant]
     Active Substance: EZETIMIBE
     Dosage: 10 MILLIGRAM, QD
     Route: 065

REACTIONS (3)
  - Embolism [Not Recovered/Not Resolved]
  - Pulmonary artery thrombosis [Unknown]
  - Pelvic venous thrombosis [Unknown]

NARRATIVE: CASE EVENT DATE: 20221109
